FAERS Safety Report 11626719 (Version 1)
Quarter: 2015Q4

REPORT INFORMATION
  Report Type: Spontaneous
  Country: BR (occurrence: BR)
  Receive Date: 20151013
  Receipt Date: 20151013
  Transmission Date: 20160304
  Serious: Yes (Other)
  Sender: FDA-Public Use
  Company Number: BR-PFIZER INC-2015335714

PATIENT
  Age: 30 Year
  Sex: Male

DRUGS (2)
  1. ZOLPIDEM [Concomitant]
     Active Substance: ZOLPIDEM\ZOLPIDEM TARTRATE
  2. FRONTAL [Suspect]
     Active Substance: ALPRAZOLAM
     Dosage: UNK
     Route: 048

REACTIONS (10)
  - Irritability [Unknown]
  - Somnolence [Unknown]
  - Vision blurred [Unknown]
  - Anxiety [Unknown]
  - Dementia [Unknown]
  - Insomnia [Unknown]
  - Feeling abnormal [Unknown]
  - Learning disability [Unknown]
  - Wheezing [Unknown]
  - Tinnitus [Not Recovered/Not Resolved]

NARRATIVE: CASE EVENT DATE: 201509
